FAERS Safety Report 8854011 (Version 1)
Quarter: 2012Q4

REPORT INFORMATION
  Report Type: Spontaneous
  Country: US (occurrence: None)
  Receive Date: 20121019
  Receipt Date: 20121019
  Transmission Date: 20130627
  Serious: Yes (Hospitalization, Other)
  Sender: FDA-Public Use
  Company Number: None

PATIENT
  Sex: Female
  Weight: 59.42 kg

DRUGS (1)
  1. RANEXA [Suspect]
     Dates: start: 201203, end: 201209

REACTIONS (13)
  - Constipation [None]
  - Nausea [None]
  - Dyspnoea [None]
  - Chest discomfort [None]
  - Vision blurred [None]
  - Heart rate irregular [None]
  - Asthenia [None]
  - Contusion [None]
  - Depression [None]
  - Crying [None]
  - Insomnia [None]
  - Swelling face [None]
  - Oedema peripheral [None]
